FAERS Safety Report 7417740-2 (Version None)
Quarter: 2011Q2

REPORT INFORMATION
  Report Type: 
  Country: None (occurrence: None)
  Receive Date: 20110415
  Receipt Date: 20110414
  Transmission Date: 20111010
  Serious: Yes (Death, Hospitalization)
  Sender: FDA-Public Use
  Company Number: PHHY2011PH26398

PATIENT
  Age: 13 Year

DRUGS (4)
  1. AMOXICILLIN [Suspect]
     Indication: TOOTH EXTRACTION
  2. MEFENAMIC ACID [Suspect]
     Indication: TOOTH EXTRACTION
  3. IBUPROFEN [Suspect]
     Indication: TOOTH EXTRACTION
  4. TRILEPTAL [Suspect]
     Indication: CONVULSION
     Dosage: 600 MG, BID

REACTIONS (3)
  - HAEMATEMESIS [None]
  - CONVULSION [None]
  - ACUTE HEPATIC FAILURE [None]
